FAERS Safety Report 25224830 (Version 1)
Quarter: 2025Q2

REPORT INFORMATION
  Report Type: Spontaneous
  Country: US (occurrence: None)
  Receive Date: 20250421
  Receipt Date: 20250421
  Transmission Date: 20250717
  Serious: Yes (Hospitalization)
  Sender: FDA-CTU
  Company Number: None

PATIENT
  Age: 71 Year
  Sex: Male
  Weight: 95.85 kg

DRUGS (1)
  1. ABIRATERONE ACETATE [Suspect]
     Active Substance: ABIRATERONE ACETATE
     Indication: Prostate cancer
     Dates: start: 20221129, end: 20240515

REACTIONS (11)
  - Fall [None]
  - Staphylococcus test positive [None]
  - Muscular weakness [None]
  - Blood electrolytes abnormal [None]
  - Parkinson^s disease [None]
  - Orthostatic hypotension [None]
  - Haemorrhage intracranial [None]
  - Anaemia [None]
  - Pulmonary embolism [None]
  - Arrhythmia [None]
  - Cerebrovascular accident [None]

NARRATIVE: CASE EVENT DATE: 20240509
